FAERS Safety Report 9319964 (Version 1)
Quarter: 2013Q2

REPORT INFORMATION
  Report Type: Report from Study
  Country: US (occurrence: US)
  Receive Date: 20130530
  Receipt Date: 20130530
  Transmission Date: 20140414
  Serious: Yes (Other)
  Sender: FDA-Public Use
  Company Number: PHEH2011US07762

PATIENT
  Sex: Female

DRUGS (22)
  1. GLEEVEC [Suspect]
     Indication: CHRONIC MYELOID LEUKAEMIA
     Dosage: 400 MG, ONE TABLET DAILY
     Route: 048
     Dates: start: 20101103
  2. GLEEVEC [Suspect]
     Dosage: 400 MG, ONE TABLET DAILY
     Route: 048
     Dates: start: 20110801
  3. GLEEVEC [Suspect]
     Dosage: 400 MG, DAILY
     Route: 048
  4. GLEEVEC [Suspect]
     Dosage: UNK UKN, PRN
  5. GLEEVEC [Suspect]
     Dosage: 400 DAILY, UNK
     Route: 048
  6. GLEEVEC [Suspect]
     Dosage: 300 MG, QD
     Route: 048
  7. NORVASC [Concomitant]
     Dosage: UNK UKN, UNK
  8. LOSARTAN [Concomitant]
     Dosage: UNK UKN, UNK
  9. NITROSTAT [Concomitant]
     Dosage: UNK UKN, UNK
  10. PRAVASTATIN [Concomitant]
     Dosage: UNK UKN, UNK
  11. COREG [Concomitant]
     Dosage: UNK UKN, UNK
  12. DIGOXIN [Concomitant]
     Dosage: UNK UKN, UNK
  13. ISOSORBIDE [Concomitant]
     Dosage: UNK UKN, UNK
  14. GLIPIZIDE [Concomitant]
     Dosage: UNK UKN, UNK
  15. ZANTAC [Concomitant]
     Dosage: UNK UKN, UNK
  16. TYLENOL [Concomitant]
     Dosage: UNK UKN, UNK
  17. LORTAB [Concomitant]
     Dosage: UNK UKN, UNK
  18. ASPIRIN [Concomitant]
     Dosage: 81 MG, UNK
  19. VITAMIN D3 [Concomitant]
     Dosage: UNK UKN, UNK
  20. FISH OIL [Concomitant]
     Dosage: UNK UKN, UNK
  21. CO Q10 [Concomitant]
     Dosage: UNK UKN, UNK
  22. METFORMIN [Concomitant]
     Dosage: UNK UKN, UNK

REACTIONS (8)
  - Diabetes mellitus [Unknown]
  - Nausea [Recovered/Resolved]
  - Renal function test abnormal [Unknown]
  - Abdominal discomfort [Unknown]
  - Vomiting [Unknown]
  - Diarrhoea [Unknown]
  - Malaise [Unknown]
  - Renal disorder [Unknown]
